FAERS Safety Report 4462174-6 (Version None)
Quarter: 2004Q3

REPORT INFORMATION
  Report Type: 
  Country: None (occurrence: None)
  Receive Date: 20040924
  Receipt Date: 20040913
  Transmission Date: 20050211
  Serious: Yes (Death, Life-Threatening, Hospitalization)
  Sender: FDA-Public Use
  Company Number: 914#1#2004-00023

PATIENT
  Age: 28 Year
  Sex: Female

DRUGS (4)
  1. VERELAN PM 200 MG (VERAPAMIL HYDROCHLORIDE) [Suspect]
     Indication: OVERDOSE
     Dosage: 1 ONCE, ORAL
     Route: 048
     Dates: start: 20040803, end: 20040804
  2. BENZODIAZEPINES [Concomitant]
  3. OPIATES [Concomitant]
  4. TETRAHYDROCANNABINOL [Concomitant]

REACTIONS (11)
  - ATRIOVENTRICULAR BLOCK COMPLETE [None]
  - CONFUSIONAL STATE [None]
  - GASTROINTESTINAL MOTILITY DISORDER [None]
  - HYPOTENSION [None]
  - LETHARGY [None]
  - METABOLIC ACIDOSIS [None]
  - MULTIPLE DRUG OVERDOSE [None]
  - NODAL RHYTHM [None]
  - OLIGURIA [None]
  - OXYGEN SATURATION DECREASED [None]
  - RENAL IMPAIRMENT [None]
